FAERS Safety Report 14567336 (Version 4)
Quarter: 2018Q2

REPORT INFORMATION
  Report Type: Report from Study
  Country: AU (occurrence: AU)
  Receive Date: 20180223
  Receipt Date: 20180426
  Transmission Date: 20180711
  Serious: Yes (Hospitalization)
  Sender: FDA-Public Use
  Company Number: AU-SA-2016SA226403

PATIENT
  Age: 38 Year
  Sex: Female
  Weight: 70 kg

DRUGS (1)
  1. LEMTRADA [Suspect]
     Active Substance: ALEMTUZUMAB
     Indication: MULTIPLE SCLEROSIS RELAPSE
     Route: 041
     Dates: start: 20161107, end: 20161109

REACTIONS (7)
  - Thrombocytopenia [Recovering/Resolving]
  - Dyspnoea [Recovered/Resolved]
  - Platelet count decreased [Not Recovered/Not Resolved]
  - Musculoskeletal stiffness [Recovered/Resolved]
  - Mood altered [Recovered/Resolved]
  - Multiple sclerosis relapse [Not Recovered/Not Resolved]
  - Blood thyroid stimulating hormone decreased [Not Recovered/Not Resolved]

NARRATIVE: CASE EVENT DATE: 20161108
